FAERS Safety Report 20871389 (Version 1)
Quarter: 2022Q2

REPORT INFORMATION
  Report Type: Spontaneous
  Country: US (occurrence: US)
  Receive Date: 20220525
  Receipt Date: 20220525
  Transmission Date: 20220721
  Serious: Yes (Death, Other)
  Sender: FDA-Public Use
  Company Number: US-MYLANLABS-2022M1038553

PATIENT
  Age: 14 Year
  Sex: Male

DRUGS (58)
  1. PREDNISONE [Suspect]
     Active Substance: PREDNISONE
     Indication: B precursor type acute leukaemia
     Dosage: AS A PART OF CHILDREN^S CANCER GROUP (CCG) PROTOCOL 1961
     Route: 065
  2. PREDNISONE [Suspect]
     Active Substance: PREDNISONE
     Indication: Central nervous system leukaemia
  3. METHOTREXATE [Suspect]
     Active Substance: METHOTREXATE
     Indication: B precursor type acute leukaemia
     Dosage: AS A PART OF CHILDREN^S CANCER GROUP (CCG) PROTOCOL 1961
     Route: 037
  4. METHOTREXATE [Suspect]
     Active Substance: METHOTREXATE
     Indication: Central nervous system leukaemia
     Dosage: AS A PART OF CHILDREN^S ONCOLOGY GROUP (COG) PROTOCOL AALL02P2
     Route: 037
  5. METHOTREXATE [Suspect]
     Active Substance: METHOTREXATE
     Indication: B precursor type acute leukaemia
     Dosage: AS A PART OF CHILDREN^S CANCER GROUP (CCG) PROTOCOL 1961--ESCALATING METHOTREXATE
     Route: 065
  6. METHOTREXATE [Suspect]
     Active Substance: METHOTREXATE
     Indication: Central nervous system leukaemia
     Dosage: AS A PART OF CHILDREN^S ONCOLOGY GROUP (COG) PROTOCOL AALL02P2
     Route: 065
  7. METHOTREXATE [Suspect]
     Active Substance: METHOTREXATE
     Dosage: ESCALATING METHOTREXATE WITH CRISANTASPASE
     Route: 065
  8. METHOTREXATE [Suspect]
     Active Substance: METHOTREXATE
     Indication: B precursor type acute leukaemia
     Dosage: MULTIPLE DOSES WITH CYTARABINE
  9. METHOTREXATE [Suspect]
     Active Substance: METHOTREXATE
     Indication: Central nervous system leukaemia
     Dosage: SINGLE DOSE
  10. CYTARABINE [Suspect]
     Active Substance: CYTARABINE
     Indication: B precursor type acute leukaemia
     Dosage: AFTER SECOND RELAPSE IN HIS BONE MARROW AND CNS
     Route: 065
  11. CYTARABINE [Suspect]
     Active Substance: CYTARABINE
     Indication: Central nervous system leukaemia
     Dosage: AS A PART OF CHILDREN^S CANCER GROUP (CCG) PROTOCOL 1961
     Route: 065
  12. CYTARABINE [Suspect]
     Active Substance: CYTARABINE
     Dosage: AS A PART OF CHILDREN^S ONCOLOGY GROUP (COG) PROTOCOL AALL02P2
     Route: 065
  13. CYTARABINE [Suspect]
     Active Substance: CYTARABINE
     Indication: B precursor type acute leukaemia
     Dosage: AS A PART OF CHILDREN^S ONCOLOGY GROUP (COG) PROTOCOL AALL02P2- INTRATHECAL TRIPLE THERAPY
     Route: 037
  14. CYTARABINE [Suspect]
     Active Substance: CYTARABINE
     Indication: Central nervous system leukaemia
     Dosage: MULTIPLE DOSES
  15. DOXORUBICIN [Suspect]
     Active Substance: DOXORUBICIN
     Indication: B precursor type acute leukaemia
     Dosage: AS A PART OF CHILDREN^S CANCER GROUP (CCG) PROTOCOL 1961
     Route: 065
  16. DOXORUBICIN [Suspect]
     Active Substance: DOXORUBICIN
     Indication: Central nervous system leukaemia
     Dosage: AS A PART OF CHILDREN^S ONCOLOGY GROUP (COG) PROTOCOL AALL02P2
     Route: 065
  17. DOXORUBICIN [Suspect]
     Active Substance: DOXORUBICIN
     Dosage: AFTER LAST BONE MARROW RELAPSE
     Route: 065
  18. DEXAMETHASONE [Suspect]
     Active Substance: DEXAMETHASONE
     Indication: B precursor type acute leukaemia
     Dosage: AS A PART OF CHILDREN^S CANCER GROUP (CCG) PROTOCOL 1961
     Route: 065
  19. DEXAMETHASONE [Suspect]
     Active Substance: DEXAMETHASONE
     Indication: Central nervous system leukaemia
     Dosage: AS A PART OF CHILDREN^S ONCOLOGY GROUP (COG) PROTOCOL AALL02P2
     Route: 065
  20. DEXAMETHASONE [Suspect]
     Active Substance: DEXAMETHASONE
     Dosage: AFTER CNS RELAPSE WITH LEPTOMENINGEAL INVOLVEMENT
     Route: 065
  21. DEXAMETHASONE [Suspect]
     Active Substance: DEXAMETHASONE
     Dosage: AFTER LAST BONE MARROW RELAPSE
     Route: 065
  22. MERCAPTOPURINE [Suspect]
     Active Substance: MERCAPTOPURINE
     Indication: B precursor type acute leukaemia
     Dosage: AS A PART OF CHILDREN^S CANCER GROUP (CCG) PROTOCOL 1961
     Route: 065
  23. MERCAPTOPURINE [Suspect]
     Active Substance: MERCAPTOPURINE
     Indication: Central nervous system leukaemia
     Dosage: AS A PART OF CHILDREN^S ONCOLOGY GROUP (COG) PROTOCOL AALL02P2
     Route: 065
  24. HYDROCORTISONE [Suspect]
     Active Substance: HYDROCORTISONE
     Indication: B precursor type acute leukaemia
     Dosage: AS A PART OF CHILDREN^S ONCOLOGY GROUP (COG) PROTOCOL AALL02P2- INTRATHECAL TRIPLE THERAPY
     Route: 037
  25. HYDROCORTISONE [Suspect]
     Active Substance: HYDROCORTISONE
     Indication: Central nervous system leukaemia
  26. HYDROCORTISONE [Suspect]
     Active Substance: HYDROCORTISONE
     Indication: B precursor type acute leukaemia
     Dosage: ALONG WITH RITUXIMAB
  27. HYDROCORTISONE [Suspect]
     Active Substance: HYDROCORTISONE
     Indication: Central nervous system leukaemia
  28. ETOPOSIDE [Suspect]
     Active Substance: ETOPOSIDE
     Indication: B precursor type acute leukaemia
     Dosage: AS A PART OF CHILDREN^S ONCOLOGY GROUP (COG) PROTOCOL AALL02P2
     Route: 065
  29. ETOPOSIDE [Suspect]
     Active Substance: ETOPOSIDE
     Indication: Central nervous system leukaemia
     Dosage: AFTER SECOND RELAPSE IN BONE MARROW AND CNS
     Route: 065
  30. ETOPOSIDE [Suspect]
     Active Substance: ETOPOSIDE
     Dosage: AFTER CNS RELAPSE WITH LEPTOMENINGEAL INVOLVEMENT
     Route: 065
  31. IFOSFAMIDE [Suspect]
     Active Substance: IFOSFAMIDE
     Indication: B precursor type acute leukaemia
     Dosage: AFTER SECOND RELAPSE IN BONE MARROW AND CNS
     Route: 065
  32. IFOSFAMIDE [Suspect]
     Active Substance: IFOSFAMIDE
     Indication: Central nervous system leukaemia
  33. TEMOZOLOMIDE [Suspect]
     Active Substance: TEMOZOLOMIDE
     Indication: B precursor type acute leukaemia
     Dosage: AFTER DETECTION OF CRANIAL NERVE INVOLVEMENT
     Route: 065
  34. TEMOZOLOMIDE [Suspect]
     Active Substance: TEMOZOLOMIDE
     Indication: Central nervous system leukaemia
  35. TOPOTECAN [Suspect]
     Active Substance: TOPOTECAN HYDROCHLORIDE
     Indication: Central nervous system leukaemia
     Dosage: MULTIPLE DOSES
  36. TOPOTECAN [Suspect]
     Active Substance: TOPOTECAN HYDROCHLORIDE
     Indication: B precursor type acute leukaemia
  37. DAUNORUBICIN [Suspect]
     Active Substance: DAUNORUBICIN
     Indication: B precursor type acute leukaemia
     Dosage: AS A PART OF CHILDREN^S CANCER GROUP (CCG) PROTOCOL 1961
     Route: 065
  38. DAUNORUBICIN [Suspect]
     Active Substance: DAUNORUBICIN
     Indication: Central nervous system leukaemia
     Dosage: AS A PART OF CHILDREN^S ONCOLOGY GROUP (COG) PROTOCOL AALL02P2
     Route: 065
  39. VINCRISTINE [Suspect]
     Active Substance: VINCRISTINE
     Indication: B precursor type acute leukaemia
     Dosage: AS A PART OF CHILDREN^S CANCER GROUP (CCG) PROTOCOL 1961
     Route: 065
  40. VINCRISTINE [Suspect]
     Active Substance: VINCRISTINE
     Indication: Central nervous system leukaemia
     Dosage: AS A PART OF CHILDREN^S ONCOLOGY GROUP (COG) PROTOCOL AALL02P2
     Route: 065
  41. VINCRISTINE [Suspect]
     Active Substance: VINCRISTINE
     Dosage: AFTER BONE MARROW RELAPSE
     Route: 065
  42. CYCLOPHOSPHAMIDE [Suspect]
     Active Substance: CYCLOPHOSPHAMIDE
     Indication: B precursor type acute leukaemia
     Dosage: AS A PART OF CHILDREN^S CANCER GROUP (CCG) PROTOCOL 1961
     Route: 065
  43. CYCLOPHOSPHAMIDE [Suspect]
     Active Substance: CYCLOPHOSPHAMIDE
     Indication: Central nervous system leukaemia
     Dosage: AS A PART OF CHILDREN^S ONCOLOGY GROUP (COG) PROTOCOL AALL02P2
     Route: 065
  44. CYCLOPHOSPHAMIDE [Suspect]
     Active Substance: CYCLOPHOSPHAMIDE
     Dosage: AFTER CNS RELAPSE WITH LEPTOMENINGEAL INVOLVEMENT
     Route: 065
  45. THIOGUANINE ANHYDROUS [Suspect]
     Active Substance: THIOGUANINE ANHYDROUS
     Indication: B precursor type acute leukaemia
     Dosage: AS A PART OF CHILDREN^S CANCER GROUP (CCG) PROTOCOL 1961
     Route: 065
  46. THIOGUANINE ANHYDROUS [Suspect]
     Active Substance: THIOGUANINE ANHYDROUS
     Indication: Central nervous system leukaemia
  47. ASPARAGINASE ERWINIA CHRYSANTHEMI [Suspect]
     Active Substance: ASPARAGINASE ERWINIA CHRYSANTHEMI
     Indication: B precursor type acute leukaemia
     Dosage: AS A PART OF CHILDREN^S ONCOLOGY GROUP (COG) PROTOCOL AALL02P2
     Route: 065
  48. ASPARAGINASE ERWINIA CHRYSANTHEMI [Suspect]
     Active Substance: ASPARAGINASE ERWINIA CHRYSANTHEMI
     Indication: Central nervous system leukaemia
     Dosage: AFTER SECOND RELAPSE IN BONE MARROW AND CNS
     Route: 065
  49. THALIDOMIDE [Suspect]
     Active Substance: THALIDOMIDE
     Indication: B precursor type acute leukaemia
     Dosage: AFTER CNS RELAPSE WITH LEPTOMENINGEAL INVOLVEMENT
     Route: 065
  50. THALIDOMIDE [Suspect]
     Active Substance: THALIDOMIDE
     Indication: Central nervous system leukaemia
  51. RITUXIMAB [Suspect]
     Active Substance: RITUXIMAB
     Indication: B precursor type acute leukaemia
     Dosage: MULTIPLE DOSES
  52. RITUXIMAB [Suspect]
     Active Substance: RITUXIMAB
     Indication: Central nervous system leukaemia
     Dosage: UNK
  53. BORTEZOMIB [Suspect]
     Active Substance: BORTEZOMIB
     Indication: B precursor type acute leukaemia
     Dosage: AFTER FINAL BONE MARROW RELAPSE
     Route: 065
  54. BORTEZOMIB [Suspect]
     Active Substance: BORTEZOMIB
     Indication: Central nervous system leukaemia
  55. EPRATUZUMAB [Concomitant]
     Active Substance: EPRATUZUMAB
     Indication: B precursor type acute leukaemia
     Dosage: UNK
  56. EPRATUZUMAB [Concomitant]
     Active Substance: EPRATUZUMAB
     Indication: Central nervous system leukaemia
  57. PEGASPARGASE [Concomitant]
     Active Substance: PEGASPARGASE
     Indication: B precursor type acute leukaemia
     Dosage: UNK
     Route: 065
  58. PEGASPARGASE [Concomitant]
     Active Substance: PEGASPARGASE
     Indication: Central nervous system leukaemia

REACTIONS (2)
  - Treatment failure [Fatal]
  - Off label use [Unknown]
